FAERS Safety Report 17670902 (Version 1)
Quarter: 2020Q2

REPORT INFORMATION
  Report Type: Spontaneous
  Country: US (occurrence: US)
  Receive Date: 20200415
  Receipt Date: 20200415
  Transmission Date: 20200713
  Serious: No
  Sender: FDA-Public Use
  Company Number: US-BAYER-2020-058557

PATIENT
  Age: 17 Year
  Sex: Male

DRUGS (2)
  1. STIVARGA [Suspect]
     Active Substance: REGORAFENIB
     Indication: OSTEOSARCOMA
     Dosage: 4 DF
     Dates: start: 201912, end: 202001
  2. STIVARGA [Suspect]
     Active Substance: REGORAFENIB
     Indication: MASS
     Dosage: 2 DF
     Route: 048
     Dates: start: 202001

REACTIONS (2)
  - Alopecia [Not Recovered/Not Resolved]
  - Blister [Recovered/Resolved]

NARRATIVE: CASE EVENT DATE: 201912
